FAERS Safety Report 10973851 (Version 1)
Quarter: 2015Q1

REPORT INFORMATION
  Report Type: Spontaneous
  Country: US (occurrence: None)
  Receive Date: 20150226
  Receipt Date: 20150226
  Transmission Date: 20150721
  Serious: No
  Sender: FDA-Public Use
  Company Number: TPA2009Q00254

PATIENT
  Age: 68 Year
  Sex: Male

DRUGS (9)
  1. PEPCID [Concomitant]
     Active Substance: FAMOTIDINE
  2. TESTOSTERONE. [Concomitant]
     Active Substance: TESTOSTERONE
  3. COUMADIN [Concomitant]
     Active Substance: WARFARIN SODIUM
  4. ULORIC [Suspect]
     Active Substance: FEBUXOSTAT
     Route: 048
     Dates: start: 20090312, end: 20090315
  5. COLCHICINE. [Concomitant]
     Active Substance: COLCHICINE
  6. FLOMAX [Concomitant]
     Active Substance: TAMSULOSIN HYDROCHLORIDE
  7. TORSEMIDE. [Concomitant]
     Active Substance: TORSEMIDE
  8. ZETIA [Concomitant]
     Active Substance: EZETIMIBE
  9. COREG [Concomitant]
     Active Substance: CARVEDILOL

REACTIONS (1)
  - Rash [None]

NARRATIVE: CASE EVENT DATE: 20090313
